FAERS Safety Report 24875054 (Version 2)
Quarter: 2025Q2

REPORT INFORMATION
  Report Type: Report from Study
  Country: SI (occurrence: SI)
  Receive Date: 20250122
  Receipt Date: 20250403
  Transmission Date: 20250717
  Serious: Yes (Hospitalization)
  Sender: MERCK SHARP AND DOHME
  Company Number: SI-009507513-2501SVN005854

PATIENT
  Age: 41 Year
  Sex: Male
  Weight: 110 kg

DRUGS (7)
  1. SOTATERCEPT [Suspect]
     Active Substance: SOTATERCEPT
     Indication: Pulmonary arterial hypertension
     Dosage: DOSE DESCRIPTION: FIRST 0.7 ML, Q3W (STRENGTH: 45 MG)
     Route: 058
     Dates: start: 20240913, end: 20240913
  2. SOTATERCEPT [Suspect]
     Active Substance: SOTATERCEPT
     Dosage: DOSE DESCRIPTION: SECOND DOSE 1.6 ML, Q3W (STRENGTH: 2X45 MG)
     Route: 058
     Dates: start: 20241003, end: 20241003
  3. SOTATERCEPT [Suspect]
     Active Substance: SOTATERCEPT
     Dosage: DOSE DESCRIPTION: 0.7 ML, Q3W (STRENGTH: 45 MG)
     Route: 058
     Dates: start: 20241107, end: 20241128
  4. SOTATERCEPT [Suspect]
     Active Substance: SOTATERCEPT
  5. SILDENAFIL [Concomitant]
     Active Substance: SILDENAFIL
     Indication: Pulmonary arterial hypertension
     Dosage: DOSE DESCRIPTION : 20 MILLIGRAM, TID?DAILY DOSE : 60 MILLIGRAM
     Route: 048
     Dates: start: 2015
  6. TREPROSTINIL [Concomitant]
     Active Substance: TREPROSTINIL
     Indication: Pulmonary arterial hypertension
     Route: 058
     Dates: start: 2015
  7. SPIRONOLACTONE [Concomitant]
     Active Substance: SPIRONOLACTONE
     Indication: Right ventricular failure
     Dosage: DOSE DESCRIPTION : 25 MILLIGRAM, QD?DAILY DOSE : 25 MILLIGRAM
     Route: 048
     Dates: start: 2015

REACTIONS (3)
  - Epistaxis [Recovered/Resolved]
  - Epistaxis [Recovered/Resolved]
  - Epistaxis [Recovered/Resolved]

NARRATIVE: CASE EVENT DATE: 20241022
